FAERS Safety Report 21746526 (Version 1)
Quarter: 2022Q4

REPORT INFORMATION
  Report Type: Spontaneous
  Country: MY (occurrence: None)
  Receive Date: 20221219
  Receipt Date: 20221219
  Transmission Date: 20230113
  Serious: Yes (Other)
  Sender: FDA-Public Use
  Company Number: MY-ROCHE-3244030

PATIENT
  Age: 59 Year
  Sex: Male

DRUGS (1)
  1. XELODA [Suspect]
     Active Substance: CAPECITABINE
     Indication: Colon cancer
     Route: 048

REACTIONS (2)
  - Cholecystitis [Recovering/Resolving]
  - Hepatitis [Recovering/Resolving]
